FAERS Safety Report 17472837 (Version 3)
Quarter: 2020Q1

REPORT INFORMATION
  Report Type: Report from Study
  Country: US (occurrence: US)
  Receive Date: 20200228
  Receipt Date: 20200311
  Transmission Date: 20200409
  Serious: Yes (Hospitalization, Other)
  Sender: FDA-Public Use
  Company Number: US-GILEAD-2020-0452783

PATIENT
  Age: 67 Year
  Sex: Male

DRUGS (2)
  1. UPTRAVI [Concomitant]
     Active Substance: SELEXIPAG
  2. AMBRISENTAN [Suspect]
     Active Substance: AMBRISENTAN
     Indication: PRODUCT USED FOR UNKNOWN INDICATION
     Dosage: 10 MG, QD
     Route: 048
     Dates: start: 20190820

REACTIONS (5)
  - Pneumonia [Unknown]
  - Haemoglobin decreased [Unknown]
  - Sensory disturbance [Not Recovered/Not Resolved]
  - Blood iron decreased [Unknown]
  - Pain in jaw [Not Recovered/Not Resolved]
